FAERS Safety Report 24941533 (Version 1)
Quarter: 2025Q1

REPORT INFORMATION
  Report Type: Spontaneous
  Country: US (occurrence: None)
  Receive Date: 20250206
  Receipt Date: 20250206
  Transmission Date: 20250408
  Serious: No
  Sender: FDA-CTU
  Company Number: None

PATIENT
  Age: 55 Year
  Sex: Male
  Weight: 122.02 kg

DRUGS (1)
  1. NEMLUVIO [Suspect]
     Active Substance: NEMOLIZUMAB-ILTO
     Indication: Neurodermatitis
     Route: 058
     Dates: start: 20241203

REACTIONS (4)
  - Dizziness [None]
  - Confusional state [None]
  - Syncope [None]
  - Blood glucose abnormal [None]

NARRATIVE: CASE EVENT DATE: 20250120
